FAERS Safety Report 16636898 (Version 1)
Quarter: 2019Q3

REPORT INFORMATION
  Report Type: Spontaneous
  Country: BR (occurrence: BR)
  Receive Date: 20190726
  Receipt Date: 20190726
  Transmission Date: 20191004
  Serious: Yes (Hospitalization)
  Sender: FDA-Public Use
  Company Number: BR-SA-2019SA198804

PATIENT
  Age: 25 Year
  Sex: Male

DRUGS (2)
  1. TENOXICAM [Concomitant]
     Active Substance: TENOXICAM
     Indication: MUSCULOSKELETAL PAIN
     Dosage: UNK UNK, UNK
     Route: 065
  2. ENOXAPARIN SODIUM. [Suspect]
     Active Substance: ENOXAPARIN SODIUM
     Indication: PROPHYLAXIS
     Dosage: 40 MG, QD
     Route: 058

REACTIONS (4)
  - Haematoma [Recovered/Resolved]
  - Oedema [Recovered/Resolved]
  - Orthostatic hypotension [Recovered/Resolved]
  - Haemoglobin decreased [Recovered/Resolved]
